FAERS Safety Report 4531546-3 (Version None)
Quarter: 2004Q4

REPORT INFORMATION
  Report Type: 
  Country: None (occurrence: None)
  Receive Date: 20041216
  Receipt Date: 20041126
  Transmission Date: 20050328
  Serious: Yes (Disabling)
  Sender: FDA-Public Use
  Company Number: USA040360713

PATIENT
  Age: 59 Year
  Sex: Male

DRUGS (2)
  1. CIALIS [Suspect]
     Indication: ERECTILE DYSFUNCTION
     Dosage: 20 MG OTHER
     Dates: start: 20040211, end: 20040212
  2. BUPROPION HCL [Concomitant]

REACTIONS (10)
  - DIZZINESS [None]
  - EYE DISORDER [None]
  - HAEMORRHAGE [None]
  - HYPOTENSION [None]
  - OPTIC ATROPHY [None]
  - OPTIC ISCHAEMIC NEUROPATHY [None]
  - OPTIC NERVE INFARCTION [None]
  - PROCEDURAL COMPLICATION [None]
  - RETINAL EXUDATES [None]
  - SCOTOMA [None]
